FAERS Safety Report 6204561-1 (Version None)
Quarter: 2009Q2

REPORT INFORMATION
  Report Type: 
  Country: None (occurrence: None)
  Receive Date: 20090527
  Receipt Date: 20090514
  Transmission Date: 20091009
  Serious: Yes (Hospitalization)
  Sender: FDA-Public Use
  Company Number: GB-PFIZER INC-2009212941

PATIENT
  Age: 65 Year

DRUGS (5)
  1. XALATAN [Suspect]
     Indication: GLAUCOMA
  2. AZOPT [Suspect]
     Indication: GLAUCOMA
  3. SERETIDE [Suspect]
     Indication: ASTHMA
     Dosage: UNK
     Dates: start: 20030101
  4. VENTOLIN [Suspect]
     Indication: ASTHMA
     Dosage: 100 UG, AS NEEDED
  5. PARACETAMOL [Concomitant]

REACTIONS (1)
  - NASOPHARYNGITIS [None]
